FAERS Safety Report 6710034-X (Version None)
Quarter: 2010Q2

REPORT INFORMATION
  Report Type: 
  Country: None (occurrence: None)
  Receive Date: 20100503
  Receipt Date: 20100503
  Transmission Date: 20101027
  Serious: Yes (Other)
  Sender: FDA-Public Use
  Company Number: None

PATIENT
  Sex: Male
  Weight: 13.6079 kg

DRUGS (1)
  1. ZYRTEC [Suspect]
     Indication: SEASONAL ALLERGY
     Dosage: 1ML 2X DAY PO
     Route: 048

REACTIONS (3)
  - AGGRESSION [None]
  - EATING DISORDER [None]
  - RESTLESSNESS [None]
